FAERS Safety Report 4597422-5 (Version None)
Quarter: 2005Q1

REPORT INFORMATION
  Report Type: 
  Country: None (occurrence: None)
  Receive Date: 20050303
  Receipt Date: 20050218
  Transmission Date: 20050727
  Serious: Yes (Hospitalization)
  Sender: FDA-Public Use
  Company Number: PHHO2005US02992

PATIENT
  Age: 65 Year
  Sex: Male
  Weight: 85 kg

DRUGS (6)
  1. LOTREL VS BENAZEPRIL + HCTZ [Suspect]
     Indication: HYPERTENSION
     Dosage: LEVEL 1
     Route: 048
     Dates: start: 20040701
  2. LOTREL VS BENAZEPRIL + HCTZ [Suspect]
     Dosage: LEVEL 3
     Route: 048
  3. HYDRALAZINE [Suspect]
  4. COREG [Suspect]
  5. CLONIDINE [Suspect]
  6. TERAZOSIN [Suspect]

REACTIONS (2)
  - ASTHENIA [None]
  - SYNCOPE [None]
